FAERS Safety Report 17675383 (Version 1)
Quarter: 2020Q2

REPORT INFORMATION
  Report Type: Spontaneous
  Country: US (occurrence: US)
  Receive Date: 20200415
  Receipt Date: 20200415
  Transmission Date: 20200714
  Serious: No
  Sender: FDA-Public Use
  Company Number: None

PATIENT
  Age: 70 Year
  Sex: Male

DRUGS (1)
  1. REPATHA [Suspect]
     Active Substance: EVOLOCUMAB
     Indication: HYPERLIPIDAEMIA
     Route: 058
     Dates: start: 201901

REACTIONS (7)
  - Device failure [None]
  - Rash pruritic [None]
  - Urine output increased [None]
  - Aphthous ulcer [None]
  - Back pain [None]
  - Confusional state [None]
  - Oropharyngeal pain [None]

NARRATIVE: CASE EVENT DATE: 20200415
